FAERS Safety Report 13134121 (Version 6)
Quarter: 2017Q1

REPORT INFORMATION
  Report Type: Report from Study
  Country: US (occurrence: US)
  Receive Date: 20170120
  Receipt Date: 20170330
  Transmission Date: 20170428
  Serious: Yes (Hospitalization, Other)
  Sender: FDA-Public Use
  Company Number: US-GILEAD-2016-0250506

PATIENT
  Age: 45 Year
  Sex: Female

DRUGS (2)
  1. AMBRISENTAN [Suspect]
     Active Substance: AMBRISENTAN
     Indication: PULMONARY ARTERIAL HYPERTENSION
     Dosage: 10 MG, QD
     Route: 065
     Dates: start: 20160216
  2. AMBRISENTAN [Suspect]
     Active Substance: AMBRISENTAN
     Indication: SCLERODERMA

REACTIONS (10)
  - Nasal congestion [Not Recovered/Not Resolved]
  - Cardiomegaly [Unknown]
  - Pneumonia [Recovered/Resolved]
  - Pericardial effusion [Unknown]
  - Pneumonia aspiration [Unknown]
  - Sinusitis [Unknown]
  - Epistaxis [Not Recovered/Not Resolved]
  - Pleural effusion [Recovered/Resolved]
  - Malaise [Unknown]
  - Nasopharyngitis [Not Recovered/Not Resolved]

NARRATIVE: CASE EVENT DATE: 20161216
